FAERS Safety Report 6626936-9 (Version None)
Quarter: 2010Q1

REPORT INFORMATION
  Report Type: 
  Country: None (occurrence: None)
  Receive Date: 20100311
  Receipt Date: 20100225
  Transmission Date: 20100710
  Serious: Yes (Hospitalization)
  Sender: FDA-Public Use
  Company Number: US-CELGENEUS-163-21880-10020619

PATIENT
  Sex: Female

DRUGS (8)
  1. REVLIMID [Suspect]
     Indication: MULTIPLE MYELOMA
     Route: 048
     Dates: start: 20090501
  2. LABETALOL HCL [Concomitant]
     Indication: HYPERTENSION
     Route: 048
  3. NIFEDICAL [Concomitant]
     Indication: DRUG USE FOR UNKNOWN INDICATION
     Route: 065
  4. LEVOTHYROXINE [Concomitant]
     Indication: HYPOTHYROIDISM
     Route: 065
  5. CRESTOR [Concomitant]
     Route: 048
  6. DECADRON [Concomitant]
     Route: 048
  7. ADVAIR DISKUS 100/50 [Concomitant]
     Dosage: 1 PUFF
     Route: 048
  8. DIOVAN [Concomitant]
     Indication: HYPERTENSION
     Route: 065

REACTIONS (2)
  - CHRONIC OBSTRUCTIVE PULMONARY DISEASE [None]
  - RENAL FAILURE ACUTE [None]
